FAERS Safety Report 15836804 (Version 3)
Quarter: 2019Q1

REPORT INFORMATION
  Report Type: Spontaneous
  Country: TW (occurrence: US)
  Receive Date: 20190117
  Receipt Date: 20190327
  Transmission Date: 20190417
  Serious: Yes (Hospitalization, Other)
  Sender: FDA-Public Use
  Company Number: TW-SA-2019SA010019

PATIENT
  Age: 12 Year
  Sex: Female

DRUGS (14)
  1. PREDNISONE. [Suspect]
     Active Substance: PREDNISONE
     Indication: VOGT-KOYANAGI-HARADA SYNDROME
     Dosage: 1 MG/KG, QD
     Route: 048
  2. PREDNISOLONE. [Suspect]
     Active Substance: PREDNISOLONE
     Indication: VOGT-KOYANAGI-HARADA SYNDROME
     Dosage: 1 %, Q2H
     Route: 061
  3. KENALOG [Suspect]
     Active Substance: TRIAMCINOLONE ACETONIDE
     Indication: VOGT-KOYANAGI-HARADA SYNDROME
     Dosage: 2 MG, 1X
     Route: 031
  4. MYCOPHENOLATE MOFETIL. [Suspect]
     Active Substance: MYCOPHENOLATE MOFETIL
     Indication: VOGT-KOYANAGI-HARADA SYNDROME
     Dosage: 1500 MG, BID
     Route: 048
  5. BRIMONIDINE [Concomitant]
     Active Substance: BRIMONIDINE TARTRATE
  6. ACETAZOLAMIDE. [Concomitant]
     Active Substance: ACETAZOLAMIDE
     Route: 048
  7. PREDNISONE. [Suspect]
     Active Substance: PREDNISONE
     Dosage: 1 MG/KG, QD
     Route: 048
  8. PREDNISONE. [Suspect]
     Active Substance: PREDNISONE
     Dosage: 1 MG, QD
     Route: 048
  9. TIMOLOL. [Concomitant]
     Active Substance: TIMOLOL
     Route: 061
  10. LATANOPROST. [Concomitant]
     Active Substance: LATANOPROST
  11. PREDNISONE. [Suspect]
     Active Substance: PREDNISONE
     Dosage: UNK (GRADUAL TAPER)
     Route: 048
  12. PREDNISONE. [Suspect]
     Active Substance: PREDNISONE
     Dosage: 1.5 MG/KG, QD
     Route: 048
  13. PREDNISONE. [Suspect]
     Active Substance: PREDNISONE
     Dosage: UNK UNK, QD (TAPERED BELOW 1 MG/KG/DAY)
     Route: 048
  14. METHYLPREDNISOLONE. [Concomitant]
     Active Substance: METHYLPREDNISOLONE
     Indication: VOGT-KOYANAGI-HARADA SYNDROME
     Dosage: 250 MG, Q6H
     Route: 042

REACTIONS (7)
  - Cushingoid [Recovered/Resolved]
  - Vogt-Koyanagi-Harada syndrome [Recovering/Resolving]
  - Achromotrichia acquired [Recovering/Resolving]
  - Therapeutic response decreased [Recovering/Resolving]
  - Alopecia [Recovering/Resolving]
  - Off label use [Unknown]
  - Condition aggravated [Recovering/Resolving]

NARRATIVE: CASE EVENT DATE: 201601
